FAERS Safety Report 5101247-1 (Version None)
Quarter: 2006Q3

REPORT INFORMATION
  Report Type: 
  Country: None (occurrence: None)
  Receive Date: 20060911
  Receipt Date: 20060829
  Transmission Date: 20061208
  Serious: Yes (Disabling)
  Sender: FDA-Public Use
  Company Number: GB-ALLERGAN-0604639US

PATIENT
  Age: 62 Year
  Sex: Male

DRUGS (1)
  1. DYSPORT [Suspect]
     Indication: HYPERTONIC BLADDER
     Dosage: UNK, SINGLE
     Route: 043
     Dates: start: 20050802, end: 20050802

REACTIONS (4)
  - CONSTIPATION [None]
  - CYSTITIS [None]
  - FATIGUE [None]
  - INFLUENZA [None]
